FAERS Safety Report 6634747-3 (Version None)
Quarter: 2010Q1

REPORT INFORMATION
  Report Type: 
  Country: None (occurrence: None)
  Receive Date: 20100312
  Receipt Date: 20100312
  Transmission Date: 20100710
  Serious: Yes (Hospitalization)
  Sender: FDA-Public Use
  Company Number: None

PATIENT
  Age: 85 Year
  Sex: Female
  Weight: 77.9 kg

DRUGS (1)
  1. HYDROXYZINE [Suspect]
     Indication: INSOMNIA
     Dosage: 25 MG BID PO
     Route: 048
     Dates: start: 20100212, end: 20100213

REACTIONS (1)
  - HALLUCINATION [None]
